FAERS Safety Report 10777570 (Version 2)
Quarter: 2015Q3

REPORT INFORMATION
  Report Type: Spontaneous
  Country: US (occurrence: US)
  Receive Date: 20150209
  Receipt Date: 20150819
  Transmission Date: 20151125
  Serious: No
  Sender: FDA-Public Use
  Company Number: US-GILEAD-2015-0136255

PATIENT
  Age: 47 Year
  Sex: Male

DRUGS (11)
  1. SEROQUEL [Concomitant]
     Active Substance: QUETIAPINE FUMARATE
  2. CYANOCOBALAMIN. [Concomitant]
     Active Substance: CYANOCOBALAMIN
  3. ALBUTEROL SULFATE. [Concomitant]
     Active Substance: ALBUTEROL SULFATE
  4. OXYCODONE [Concomitant]
     Active Substance: OXYCODONE
  5. TYVASO [Suspect]
     Active Substance: TREPROSTINIL
     Route: 065
  6. SUMATRIPTAN. [Concomitant]
     Active Substance: SUMATRIPTAN
  7. ADCIRCA [Suspect]
     Active Substance: TADALAFIL
     Indication: DRUG ABUSE
     Route: 065
  8. HYOSCYAMINE. [Concomitant]
     Active Substance: HYOSCYAMINE
  9. LETAIRIS [Suspect]
     Active Substance: AMBRISENTAN
     Indication: COR PULMONALE CHRONIC
     Dosage: 10 MG, QD
     Route: 065
     Dates: start: 20140105
  10. HYDROCHLOROTHIAZIDE. [Concomitant]
     Active Substance: HYDROCHLOROTHIAZIDE
  11. ESZOPICLONE. [Concomitant]
     Active Substance: ESZOPICLONE

REACTIONS (1)
  - Headache [Not Recovered/Not Resolved]

NARRATIVE: CASE EVENT DATE: 201501
